FAERS Safety Report 8540932 (Version 2)
Quarter: 2012Q4

REPORT INFORMATION
  Report Type: Report from Study
  Country: JP (occurrence: JP)
  Receive Date: 20120502
  Receipt Date: 20121213
  Transmission Date: 20130627
  Serious: Yes (Other)
  Sender: FDA-Public Use
  Company Number: JP-SANOFI-AVENTIS-2012SA028845

PATIENT
  Age: 62 Year
  Sex: Male
  Weight: 67 kg

DRUGS (16)
  1. OXALIPLATIN [Suspect]
     Indication: COLON CANCER
     Route: 041
     Dates: start: 20110411, end: 20110411
  2. OXALIPLATIN [Suspect]
     Indication: COLON CANCER
     Route: 041
     Dates: start: 20110425, end: 20110425
  3. OXALIPLATIN [Suspect]
     Indication: COLON CANCER
     Route: 041
     Dates: start: 20110509, end: 20110509
  4. OXALIPLATIN [Suspect]
     Indication: COLON CANCER
     Route: 041
     Dates: start: 20110523, end: 20110523
  5. OXALIPLATIN [Suspect]
     Indication: COLON CANCER
     Route: 041
     Dates: start: 20110620, end: 20110620
  6. OXALIPLATIN [Suspect]
     Indication: COLON CANCER
     Route: 041
     Dates: start: 20110722, end: 20110722
  7. OXALIPLATIN [Suspect]
     Indication: COLON CANCER
     Route: 041
     Dates: start: 20110805, end: 20110805
  8. OXALIPLATIN [Suspect]
     Indication: COLON CANCER
     Route: 041
     Dates: start: 20110826, end: 20110826
  9. OXALIPLATIN [Suspect]
     Indication: COLON CANCER
     Route: 041
     Dates: start: 20110909, end: 20110909
  10. OXALIPLATIN [Suspect]
     Indication: COLON CANCER
     Route: 041
     Dates: start: 20111007, end: 20111007
  11. OXALIPLATIN [Suspect]
     Indication: COLON CANCER
     Route: 041
     Dates: start: 20111021, end: 20111021
  12. CALCIUM LEVOFOLINATE [Concomitant]
     Dates: start: 20110411, end: 20111021
  13. DEXAMETHASONE SODIUM PHOSPHATE [Concomitant]
     Dates: start: 20110411, end: 20111021
  14. 5-FU [Concomitant]
     Route: 040
     Dates: start: 20110411, end: 20111021
  15. 5-FU [Concomitant]
     Route: 041
     Dates: start: 20110411, end: 20111021
  16. CRAVIT [Concomitant]

REACTIONS (9)
  - Gastric ulcer haemorrhage [Recovering/Resolving]
  - Neuropathy peripheral [Recovering/Resolving]
  - Epididymitis [Unknown]
  - Nausea [Unknown]
  - Platelet count decreased [Unknown]
  - Stomatitis [Unknown]
  - Alopecia [Unknown]
  - Decreased appetite [Unknown]
  - Malaise [Unknown]
